FAERS Safety Report 15098128 (Version 2)
Quarter: 2018Q3

REPORT INFORMATION
  Report Type: Report from Study
  Country: US (occurrence: US)
  Receive Date: 20180702
  Receipt Date: 20180731
  Transmission Date: 20181010
  Serious: Yes (Other)
  Sender: FDA-Public Use
  Company Number: US-BAYER-2018-113788

PATIENT
  Age: 43 Year
  Sex: Female

DRUGS (2)
  1. STIVARGA [Suspect]
     Active Substance: REGORAFENIB
     Indication: COLORECTAL CANCER
     Dosage: 120 MG, QD
     Route: 048
     Dates: start: 20180511
  2. STIVARGA [Suspect]
     Active Substance: REGORAFENIB
     Indication: COLORECTAL CANCER
     Dosage: 160 MG, DAILY
     Route: 048
     Dates: end: 20180714

REACTIONS (11)
  - Hyperkeratosis [Recovered/Resolved]
  - Skin exfoliation [Not Recovered/Not Resolved]
  - Pain in extremity [Recovered/Resolved]
  - Blister [Recovered/Resolved]
  - Erythema [None]
  - Nausea [Recovering/Resolving]
  - Decreased activity [None]
  - Gait inability [Recovered/Resolved]
  - Vomiting [None]
  - Acne [None]
  - Off label use [None]

NARRATIVE: CASE EVENT DATE: 2018
